FAERS Safety Report 10182364 (Version 1)
Quarter: 2014Q2

REPORT INFORMATION
  Report Type: Spontaneous
  Country: DE (occurrence: DE)
  Receive Date: 20140520
  Receipt Date: 20140520
  Transmission Date: 20141212
  Serious: Yes (Hospitalization)
  Sender: FDA-Public Use
  Company Number: DE-PFIZER INC-2014134274

PATIENT
  Age: 30 Year
  Sex: Female
  Weight: 73 kg

DRUGS (3)
  1. VENLAFAXINE HCL [Suspect]
     Indication: DEPRESSION
     Dosage: 225 MG, DAILY
     Route: 048
  2. ELONTRIL [Suspect]
     Indication: DEPRESSION
     Dosage: 300 MG, DAILY
     Route: 048
  3. L-THYROXIN [Concomitant]
     Indication: HYPOTHYROIDISM
     Dosage: 75 UG, DAILY
     Route: 048

REACTIONS (1)
  - Gastrointestinal disorder [Unknown]
